FAERS Safety Report 20456346 (Version 1)
Quarter: 2022Q1

REPORT INFORMATION
  Report Type: Spontaneous
  Country: US (occurrence: None)
  Receive Date: 20220210
  Receipt Date: 20220210
  Transmission Date: 20220423
  Serious: Yes (Life-Threatening, Hospitalization, Disabling, Other)
  Sender: FDA-Public Use
  Company Number: None

PATIENT
  Age: 9 Year
  Sex: Female
  Weight: 25 kg

DRUGS (1)
  1. BENZONATATE [Suspect]
     Active Substance: BENZONATATE

REACTIONS (6)
  - Depressed level of consciousness [None]
  - Apnoea [None]
  - Ventricular fibrillation [None]
  - Cardiac arrest [None]
  - Seizure [None]
  - Brain injury [None]

NARRATIVE: CASE EVENT DATE: 20220114
